FAERS Safety Report 14139963 (Version 1)
Quarter: 2017Q4

REPORT INFORMATION
  Report Type: Report from Study
  Country: US (occurrence: US)
  Receive Date: 20171030
  Receipt Date: 20171030
  Transmission Date: 20180321
  Serious: Yes (Hospitalization, Other)
  Sender: FDA-Public Use
  Company Number: US-BRISTOL-MYERS SQUIBB COMPANY-BMS-2017-066244

PATIENT
  Age: 93 Year
  Sex: Female
  Weight: 67.3 kg

DRUGS (2)
  1. APIXABAN [Suspect]
     Active Substance: APIXABAN
     Indication: CEREBROVASCULAR ACCIDENT PROPHYLAXIS
     Dosage: 2.5 MG, BID
     Route: 048
     Dates: start: 201605
  2. APIXABAN [Suspect]
     Active Substance: APIXABAN
     Indication: PRODUCT USED FOR UNKNOWN INDICATION
     Dosage: 5 MG, BID
     Route: 048
     Dates: start: 201704

REACTIONS (6)
  - Cough [Recovered/Resolved]
  - Gastric haemorrhage [Unknown]
  - Off label use [Unknown]
  - Retching [Recovered/Resolved]
  - Cardiac failure congestive [Unknown]
  - Occult blood positive [Recovered/Resolved]

NARRATIVE: CASE EVENT DATE: 201704
